FAERS Safety Report 11197239 (Version 2)
Quarter: 2018Q2

REPORT INFORMATION
  Report Type: Report from Study
  Country: US (occurrence: US)
  Receive Date: 20150617
  Receipt Date: 20180618
  Transmission Date: 20180711
  Serious: Yes (Hospitalization, Other)
  Sender: FDA-Public Use
  Company Number: US-SA-2015SA009184

PATIENT
  Age: 67 Year
  Sex: Male

DRUGS (2)
  1. CEREZYME [Suspect]
     Active Substance: IMIGLUCERASE
     Indication: GAUCHER^S DISEASE
     Dosage: 4800 DF,QOW
     Route: 041
     Dates: start: 20140307
  2. CEREZYME [Suspect]
     Active Substance: IMIGLUCERASE
     Dosage: DOSE: 0.92 FREQUENCY: ALT/Q2
     Route: 041

REACTIONS (14)
  - Bone infarction [Unknown]
  - Tremor [Unknown]
  - Anaemia [Not Recovered/Not Resolved]
  - Positron emission tomogram abnormal [Unknown]
  - White blood cell count decreased [Not Recovered/Not Resolved]
  - Red blood cell count decreased [Not Recovered/Not Resolved]
  - Pulmonary mass [Unknown]
  - Tendon rupture [Recovering/Resolving]
  - Anxiety [Unknown]
  - Dyspnoea exertional [Recovering/Resolving]
  - Myelodysplastic syndrome [Unknown]
  - Immune system disorder [Unknown]
  - Plasma cell myeloma [Unknown]
  - Haemoglobin abnormal [Not Recovered/Not Resolved]

NARRATIVE: CASE EVENT DATE: 2015
